FAERS Safety Report 14729436 (Version 1)
Quarter: 2018Q2

REPORT INFORMATION
  Report Type: Spontaneous
  Country: US (occurrence: US)
  Receive Date: 20180406
  Receipt Date: 20180406
  Transmission Date: 20180711
  Serious: Yes (Hospitalization, Other)
  Sender: FDA-Public Use
  Company Number: US-HYGENIC CORPORATION-2045275

PATIENT
  Sex: Female

DRUGS (1)
  1. BIOFREEZE [Suspect]
     Active Substance: MENTHOL
     Indication: PAIN
     Route: 061
     Dates: start: 201803, end: 201803

REACTIONS (1)
  - Blister infected [Recovering/Resolving]
